FAERS Safety Report 8555360-7 (Version None)
Quarter: 2012Q3

REPORT INFORMATION
  Report Type: 
  Country: None (occurrence: None)
  Receive Date: 20120731
  Receipt Date: 20120502
  Transmission Date: 20120928
  Serious: No
  Sender: FDA-Public Use
  Company Number: US-ASTRAZENECA-2011SE22957

PATIENT
  Age: 33 Year
  Sex: Male
  Weight: 97.5 kg

DRUGS (1)
  1. SEROQUEL [Suspect]
     Route: 048
     Dates: start: 20090101

REACTIONS (18)
  - DYSPNOEA [None]
  - WEIGHT INCREASED [None]
  - ANXIETY [None]
  - NAUSEA [None]
  - BLOOD PRESSURE INCREASED [None]
  - ADVERSE EVENT [None]
  - VOMITING [None]
  - BURNING SENSATION [None]
  - DYSPEPSIA [None]
  - DECREASED APPETITE [None]
  - APATHY [None]
  - INTENTIONAL DRUG MISUSE [None]
  - DRUG DEPENDENCE [None]
  - SLEEP DISORDER [None]
  - INSOMNIA [None]
  - FEELING ABNORMAL [None]
  - PALPITATIONS [None]
  - EXPIRED DRUG ADMINISTERED [None]
